FAERS Safety Report 24210507 (Version 1)
Quarter: 2024Q3

REPORT INFORMATION
  Report Type: Spontaneous
  Country: US (occurrence: None)
  Receive Date: 20240813
  Receipt Date: 20240813
  Transmission Date: 20241017
  Serious: Yes (Other)
  Sender: Public
  Company Number: None

PATIENT
  Age: 53 Year
  Sex: Female
  Weight: 108.86 kg

DRUGS (10)
  1. LEVULAN KERASTICK [Suspect]
     Active Substance: AMINOLEVULINIC ACID HYDROCHLORIDE
     Indication: Precancerous condition
  2. ACTOS [Concomitant]
     Active Substance: PIOGLITAZONE HYDROCHLORIDE
  3. NOVOLOG [Concomitant]
     Active Substance: INSULIN ASPART
  4. leveler [Concomitant]
  5. allergy meds [Concomitant]
  6. BABY ASPIRIN [Concomitant]
  7. asthma inhalers 2 [Concomitant]
  8. BRIVIACT [Concomitant]
     Active Substance: BRIVARACETAM
  9. METHYLCOBALAMIN [Concomitant]
     Active Substance: METHYLCOBALAMIN
  10. allergy children meds [Concomitant]

REACTIONS (4)
  - Swelling face [None]
  - Infection [None]
  - Rosacea [None]
  - Illness [None]

NARRATIVE: CASE EVENT DATE: 20240605
